FAERS Safety Report 15171580 (Version 1)
Quarter: 2018Q3

REPORT INFORMATION
  Report Type: Spontaneous
  Country: US (occurrence: US)
  Receive Date: 20180720
  Receipt Date: 20180720
  Transmission Date: 20181010
  Serious: Yes (Hospitalization)
  Sender: FDA-Public Use
  Company Number: US-MYLANLABS-2018M1053558

PATIENT
  Age: 65 Year
  Sex: Male

DRUGS (4)
  1. LORAZEPAM. [Suspect]
     Active Substance: LORAZEPAM
     Indication: CATATONIA
     Dosage: 1 MG, THREE TIMES DAILY
     Route: 065
  2. LORAZEPAM. [Suspect]
     Active Substance: LORAZEPAM
     Indication: SCHIZOAFFECTIVE DISORDER
     Dosage: 0.5 MG, QID, FURTHER, RE?INITIATED AT A TITRATED DOSE OF 1MG THREE TIMES DAILY
     Route: 065
  3. DEXTROMETHORPHAN;QUINIDINE [Suspect]
     Active Substance: DEXTROMETHORPHAN HYDROBROMIDE\QUINIDINE SULFATE
     Indication: AFFECT LABILITY
     Dosage: ADMINISTERED PER DAY
     Route: 005
  4. CIPROFLOXACIN. [Suspect]
     Active Substance: CIPROFLOXACIN
     Indication: URINARY TRACT INFECTION
     Route: 065

REACTIONS (4)
  - Urinary tract infection [None]
  - Therapy cessation [None]
  - Catatonia [Recovered/Resolved]
  - Drug ineffective [Unknown]
